FAERS Safety Report 9415645 (Version 1)
Quarter: 2013Q3

REPORT INFORMATION
  Report Type: Spontaneous
  Country: FR (occurrence: FR)
  Receive Date: 20130723
  Receipt Date: 20130723
  Transmission Date: 20140515
  Serious: Yes (Hospitalization)
  Sender: FDA-Public Use
  Company Number: FR-ASTRAZENECA-2013SE52603

PATIENT
  Age: 57 Year
  Sex: Female

DRUGS (5)
  1. HYTACAND [Suspect]
     Dosage: LONG LASTING TREATMENT
     Route: 048
  2. DIFFUK [Suspect]
     Dosage: LONG LASTING TREATMENT
     Route: 048
  3. PROZAC [Suspect]
     Route: 048
     Dates: start: 201205, end: 201304
  4. FUROSEMIDE [Suspect]
     Dosage: LONG LASTING TREATMENT
     Route: 048
  5. TIMOPTOL [Suspect]
     Dosage: LONG LASTING TREATMENT
     Route: 048

REACTIONS (1)
  - Sjogren^s syndrome [Unknown]
